FAERS Safety Report 9145219 (Version 1)
Quarter: 2013Q1

REPORT INFORMATION
  Report Type: Spontaneous
  Country: US (occurrence: US)
  Receive Date: 20130307
  Receipt Date: 20130307
  Transmission Date: 20140127
  Serious: No
  Sender: FDA-Public Use
  Company Number: US-009507513-1302USA013261

PATIENT
  Age: 53 Year
  Sex: Female

DRUGS (2)
  1. JANUMET XR [Suspect]
     Indication: DIABETES MELLITUS
     Dosage: 100/1000 MG STRENGTH ONCE DAILY
     Route: 048
     Dates: start: 20130219, end: 201302
  2. JANUMET XR [Suspect]
     Indication: DIABETES MELLITUS
     Dosage: ONE PILL OF 50/500 MG DAILY
     Route: 048
     Dates: start: 201302

REACTIONS (2)
  - Dizziness [Not Recovered/Not Resolved]
  - Nausea [Not Recovered/Not Resolved]
